FAERS Safety Report 14177751 (Version 3)
Quarter: 2019Q3

REPORT INFORMATION
  Report Type: Spontaneous
  Country: US (occurrence: US)
  Receive Date: 20171110
  Receipt Date: 20190812
  Transmission Date: 20191004
  Serious: Yes (Death, Hospitalization)
  Sender: FDA-Public Use
  Company Number: US-FRESENIUS MEDICAL CARE RENAL THERAPIES GROUP-FMC-1711-001374

PATIENT
  Age: 74 Year
  Sex: Male
  Weight: 114 kg

DRUGS (18)
  1. BISACODYL. [Concomitant]
     Active Substance: BISACODYL
  2. DOCUSATE SODIUM. [Concomitant]
     Active Substance: DOCUSATE SODIUM
  3. ERGOCALCIFEROL. [Concomitant]
     Active Substance: ERGOCALCIFEROL
  4. SIMVASTATIN. [Concomitant]
     Active Substance: SIMVASTATIN
  5. LACTULOSE. [Concomitant]
     Active Substance: LACTULOSE
  6. EPOGEN [Concomitant]
     Active Substance: ERYTHROPOIETIN
  7. ASPIRIN. [Concomitant]
     Active Substance: ASPIRIN
  8. CALCITRIOL. [Concomitant]
     Active Substance: CALCITRIOL
  9. NIFEDIPINE. [Concomitant]
     Active Substance: NIFEDIPINE
  10. SIMETHICONE (DIMETHICONE) [Concomitant]
     Active Substance: DIMETHICONE
  11. DELFLEX WITH DEXTROSE 2.5% LOW MAGNESIUM LOW CALCIUM [Suspect]
     Active Substance: CALCIUM CHLORIDE\DEXTROSE\MAGNESIUM CHLORIDE\SODIUM CHLORIDE\SODIUM LACTATE
     Indication: END STAGE RENAL DISEASE
     Route: 033
  12. ACTIVATED CHARCOAL-SORBITOL [Concomitant]
  13. HYDROCODONE [Concomitant]
     Active Substance: HYDROCODONE
  14. NEPHROCAPS [Concomitant]
     Active Substance: ASCORBIC ACID\BIOTIN\CYANOCOBALAMIN\FOLIC ACID\NIACIN\PANTOTHENIC ACID\PYRIDOXINE\RIBOFLAVIN\THIAMINE
  15. DOXAZOSIN [Concomitant]
     Active Substance: DOXAZOSIN MESYLATE
  16. GENTAMICIN. [Concomitant]
     Active Substance: GENTAMICIN
  17. LOSARTAN. [Concomitant]
     Active Substance: LOSARTAN
  18. OMEPRAZOLE. [Concomitant]
     Active Substance: OMEPRAZOLE

REACTIONS (3)
  - Metabolic acidosis [Fatal]
  - Peritonitis bacterial [Fatal]
  - Cardiac arrest [Fatal]

NARRATIVE: CASE EVENT DATE: 20171020
